FAERS Safety Report 10519210 (Version 1)
Quarter: 2014Q4

REPORT INFORMATION
  Report Type: Spontaneous
  Country: US (occurrence: US)
  Receive Date: 20141015
  Receipt Date: 20141015
  Transmission Date: 20150528
  Serious: No
  Sender: FDA-Public Use
  Company Number: US-TARO-2014TAR00057

PATIENT
  Age: 80 Year
  Sex: Male
  Weight: 70.3 kg

DRUGS (1)
  1. CLOTRIMAZOLE TOPICAL CREAM USP 1% [Suspect]
     Active Substance: CLOTRIMAZOLE
     Dosage: UNK UNK, 2X/DAY
     Route: 061
     Dates: start: 20140523, end: 20140612

REACTIONS (1)
  - Drug ineffective [Not Recovered/Not Resolved]

NARRATIVE: CASE EVENT DATE: 20140523
